FAERS Safety Report 5353282-6 (Version None)
Quarter: 2007Q2

REPORT INFORMATION
  Report Type: 
  Country: None (occurrence: None)
  Receive Date: 20070518
  Receipt Date: 20070208
  Transmission Date: 20071010
  Serious: No
  Sender: FDA-Public Use
  Company Number: TPA2007A00359

PATIENT
  Sex: Male

DRUGS (1)
  1. ROZEREM [Suspect]
     Indication: SEDATIVE THERAPY
     Dosage: 8 MG, AS REQUIRED, PER ORAL
     Route: 048
     Dates: end: 20070101

REACTIONS (1)
  - VERTIGO [None]
